FAERS Safety Report 24047074 (Version 1)
Quarter: 2024Q3

REPORT INFORMATION
  Report Type: Spontaneous
  Country: US (occurrence: US)
  Receive Date: 20240703
  Receipt Date: 20240703
  Transmission Date: 20241017
  Serious: No
  Sender: ROCHE
  Company Number: US-ROCHE-10000014172

PATIENT
  Age: 45 Year
  Sex: Female

DRUGS (1)
  1. ALECENSA [Suspect]
     Active Substance: ALECTINIB HYDROCHLORIDE
     Indication: Lung neoplasm malignant
     Route: 048

REACTIONS (6)
  - Oedema [Unknown]
  - Palpitations [Unknown]
  - Asthenia [Unknown]
  - Nausea [Unknown]
  - Swelling [Unknown]
  - Dehydration [Unknown]
